FAERS Safety Report 6968668-3 (Version None)
Quarter: 2010Q3

REPORT INFORMATION
  Report Type: 
  Country: None (occurrence: None)
  Receive Date: 20100907
  Receipt Date: 20100831
  Transmission Date: 20110219
  Serious: Yes (Other)
  Sender: FDA-Public Use
  Company Number: US-PFIZER INC-2010088938

PATIENT
  Sex: Female
  Weight: 117.9 kg

DRUGS (3)
  1. SUTENT [Suspect]
     Indication: PHAEOCHROMOCYTOMA
     Dosage: 50 MG, UNK
     Dates: start: 20100401
  2. LASIX [Concomitant]
     Indication: HYPERTENSION
     Dosage: 40 MG, AS NEEDED
     Route: 048
  3. DIBENZYLINE [Concomitant]
     Indication: HYPERTENSION
     Dosage: 10 MG, UNK
     Route: 048

REACTIONS (13)
  - CHROMATURIA [None]
  - CONTUSION [None]
  - DIARRHOEA [None]
  - DIZZINESS [None]
  - DYSPNOEA [None]
  - FATIGUE [None]
  - FUNGAL INFECTION [None]
  - GLOSSODYNIA [None]
  - HYPERHIDROSIS [None]
  - JOINT SWELLING [None]
  - OEDEMA PERIPHERAL [None]
  - ORAL PAIN [None]
  - SKIN EXFOLIATION [None]
